FAERS Safety Report 18788073 (Version 1)
Quarter: 2021Q1

REPORT INFORMATION
  Report Type: Spontaneous
  Country: US (occurrence: US)
  Receive Date: 20210126
  Receipt Date: 20210126
  Transmission Date: 20210419
  Serious: Yes (Hospitalization)
  Sender: FDA-Public Use
  Company Number: None

PATIENT
  Age: 53 Year
  Sex: Male
  Weight: 101 kg

DRUGS (3)
  1. RISPERIDONE M?TAB [Suspect]
     Active Substance: RISPERIDONE
     Route: 048
     Dates: start: 20201109, end: 20201221
  2. VALPROIC ACID SYRUP [Suspect]
     Active Substance: VALPROIC ACID
     Route: 048
     Dates: start: 20200928, end: 20201223
  3. OLANZAPINE ODT [Suspect]
     Active Substance: OLANZAPINE
     Dates: start: 20200828, end: 20201117

REACTIONS (5)
  - Refusal of treatment by patient [None]
  - Pressure of speech [None]
  - Thinking abnormal [None]
  - Hyponatraemia [None]
  - General physical health deterioration [None]

NARRATIVE: CASE EVENT DATE: 20201117
